FAERS Safety Report 19222621 (Version 2)
Quarter: 2021Q2

REPORT INFORMATION
  Report Type: Spontaneous
  Country: US (occurrence: US)
  Receive Date: 20210506
  Receipt Date: 20210519
  Transmission Date: 20210717
  Serious: Yes (Other)
  Sender: FDA-Public Use
  Company Number: US-BAYER-2021-133854

PATIENT
  Age: 75 Year
  Sex: Male

DRUGS (1)
  1. ASPIRIN (CARDIO) [Suspect]
     Active Substance: ASPIRIN
     Dosage: 81 MG, QD

REACTIONS (2)
  - Colitis ulcerative [None]
  - Gastrointestinal disorder [None]
